FAERS Safety Report 19957755 (Version 1)
Quarter: 2021Q4

REPORT INFORMATION
  Report Type: Spontaneous
  Country: US (occurrence: US)
  Receive Date: 20211014
  Receipt Date: 20211014
  Transmission Date: 20220303
  Serious: Yes (Disabling, Other)
  Sender: FDA-Public Use
  Company Number: US-REGENERON PHARMACEUTICALS, INC.-2021-92263

PATIENT

DRUGS (4)
  1. EYLEA [Suspect]
     Active Substance: AFLIBERCEPT
     Indication: Neovascular age-related macular degeneration
     Dosage: LEFT EYE
     Route: 031
     Dates: start: 2018
  2. EYLEA [Suspect]
     Active Substance: AFLIBERCEPT
     Dosage: RIGHT EYE, EVERY 4 TO 5 WEEKS THEN EVERY 7 TO 8 WEEKS, THEN EVERY 10 TO 11 THEN EVERY 9 WEEKS
     Route: 031
     Dates: start: 202003
  3. EYLEA [Suspect]
     Active Substance: AFLIBERCEPT
     Dosage: LAST DOSE IN LEFT EYE
     Route: 031
     Dates: start: 20201014, end: 20201014
  4. EYLEA [Suspect]
     Active Substance: AFLIBERCEPT
     Dosage: RIGHT EYE, EVERY 4 TO 5 WEEKS THEN EVERY 7 TO 8 WEEKS, THEN EVERY 10 TO 11 THEN EVERY 9 WEEKS
     Route: 031
     Dates: start: 20210929, end: 20210929

REACTIONS (2)
  - Blindness unilateral [Unknown]
  - Endophthalmitis [Not Recovered/Not Resolved]

NARRATIVE: CASE EVENT DATE: 20211004
